FAERS Safety Report 5466265-2 (Version None)
Quarter: 2007Q3

REPORT INFORMATION
  Report Type: 
  Country: None (occurrence: None)
  Receive Date: 20070919
  Receipt Date: 20070903
  Transmission Date: 20080115
  Serious: Yes (Hospitalization, Other)
  Sender: FDA-Public Use
  Company Number: 2007AP000960

PATIENT
  Age: 24 Year
  Sex: Male
  Weight: 53.5 kg

DRUGS (2)
  1. CARBIDOPA AND LEVODOPA [Suspect]
     Indication: DRUG LEVEL
     Dosage: 1 TAB; 1X; PO
     Route: 048
     Dates: start: 20070816, end: 20070816
  2. SINEMET-CR (SINEMET /NET/) [Suspect]
     Indication: DRUG LEVEL
     Dosage: 1 TAB; 1X; PO
     Route: 048
     Dates: start: 20070809, end: 20070809

REACTIONS (2)
  - HEPATITIS ACUTE [None]
  - HEPATITIS VIRAL [None]
